FAERS Safety Report 20319247 (Version 2)
Quarter: 2022Q1

REPORT INFORMATION
  Report Type: Spontaneous
  Country: US (occurrence: US)
  Receive Date: 20220110
  Receipt Date: 20220218
  Transmission Date: 20220423
  Serious: Yes (Hospitalization, Other)
  Sender: FDA-Public Use
  Company Number: US-TEVA-2022-US-1996909

PATIENT
  Sex: Female
  Weight: 56 kg

DRUGS (1)
  1. PENICILLIN [Suspect]
     Active Substance: PENICILLIN
     Route: 065

REACTIONS (4)
  - Anaphylactic reaction [Unknown]
  - Respiratory arrest [Unknown]
  - Pneumonia [Unknown]
  - Drug hypersensitivity [Unknown]
